FAERS Safety Report 7911447-0 (Version None)
Quarter: 2011Q4

REPORT INFORMATION
  Report Type: 
  Country: None (occurrence: None)
  Receive Date: 20111108
  Receipt Date: 20110922
  Transmission Date: 20120403
  Serious: No
  Sender: FDA-Public Use
  Company Number: 2011PP000040

PATIENT
  Sex: Female

DRUGS (1)
  1. NATROBA [Suspect]
     Indication: LICE INFESTATION
     Dates: start: 20110919

REACTIONS (1)
  - DRUG INEFFECTIVE [None]
